FAERS Safety Report 10522672 (Version 1)
Quarter: 2014Q4

REPORT INFORMATION
  Report Type: Spontaneous
  Country: US (occurrence: None)
  Receive Date: 20141010
  Receipt Date: 20141010
  Transmission Date: 20150528
  Serious: No
  Sender: FDA-Public Use
  Company Number: US2014GSK000251

PATIENT
  Age: 74 Year
  Sex: Male

DRUGS (3)
  1. TIVICAY [Suspect]
     Active Substance: DOLUTEGRAVIR SODIUM
     Indication: HIV INFECTION
     Route: 048
     Dates: start: 20140128
  2. EPZICOM [Suspect]
     Active Substance: ABACAVIR SULFATE\LAMIVUDINE
     Indication: HIV INFECTION
     Route: 048
     Dates: start: 20140128
  3. MEDICATION UNKNOWN (MEDICATION UNKNOWN) [Concomitant]

REACTIONS (6)
  - Fatigue [None]
  - Upper respiratory tract congestion [None]
  - Night sweats [None]
  - Upper respiratory tract infection [None]
  - Pyrexia [None]
  - Mouth ulceration [None]

NARRATIVE: CASE EVENT DATE: 201402
